FAERS Safety Report 7745696-1 (Version None)
Quarter: 2011Q3

REPORT INFORMATION
  Report Type: 
  Country: None (occurrence: None)
  Receive Date: 20110913
  Receipt Date: 20110819
  Transmission Date: 20111222
  Serious: No
  Sender: FDA-Public Use
  Company Number: US-BAYER-2011-080020

PATIENT
  Sex: Female

DRUGS (2)
  1. ALEVE (CAPLET) [Suspect]
     Dosage: UNK
     Route: 048
     Dates: start: 20110703
  2. ALEVE (CAPLET) [Suspect]
     Dosage: UNK, BID
     Route: 048
     Dates: start: 20110703

REACTIONS (1)
  - FEELING ABNORMAL [None]
